FAERS Safety Report 7151024-5 (Version None)
Quarter: 2010Q4

REPORT INFORMATION
  Report Type: 
  Country: None (occurrence: None)
  Receive Date: 20101210
  Receipt Date: 20101202
  Transmission Date: 20110411
  Serious: Yes (Hospitalization)
  Sender: FDA-Public Use
  Company Number: B0682024A

PATIENT
  Age: 60 Year
  Sex: Male

DRUGS (11)
  1. LEXIVA [Suspect]
     Indication: HIV INFECTION
     Dosage: 1400MG PER DAY
     Dates: start: 20080814
  2. NORVIR [Suspect]
     Indication: HIV INFECTION
     Dosage: 200MG PER DAY
     Dates: start: 20080814
  3. TRUVADA [Suspect]
     Indication: HIV INFECTION
     Dosage: 1IUAX PER DAY
     Dates: start: 20080814
  4. SULFAMETHOXAZOLE AND TRIMETHOPRIM [Concomitant]
     Indication: PNEUMOCYSTIS JIROVECI PNEUMONIA
     Route: 048
     Dates: start: 20090401, end: 20091209
  5. METHADERM [Concomitant]
     Indication: ECZEMA
     Route: 062
     Dates: start: 20100401
  6. HIRUDOID [Concomitant]
     Indication: ECZEMA
     Route: 062
     Dates: start: 20090401
  7. MENTAX [Concomitant]
     Indication: TINEA INFECTION
     Route: 062
     Dates: start: 20090401
  8. MENTAX [Concomitant]
     Route: 062
     Dates: start: 20090401
  9. VASELINE + SALICYLATE [Concomitant]
     Indication: ECZEMA
     Route: 062
     Dates: start: 20090401, end: 20091209
  10. DALACIN T [Concomitant]
     Indication: ECZEMA
     Route: 062
     Dates: start: 20090401
  11. ANTEBATE [Concomitant]
     Indication: ECZEMA
     Dates: start: 20090401

REACTIONS (2)
  - IMMUNE RECONSTITUTION SYNDROME [None]
  - LARGE INTESTINE CARCINOMA [None]
